FAERS Safety Report 25335007 (Version 1)
Quarter: 2025Q2

REPORT INFORMATION
  Report Type: Report from Study
  Country: CA (occurrence: CA)
  Receive Date: 20250520
  Receipt Date: 20250520
  Transmission Date: 20250717
  Serious: Yes (Other)
  Sender: CURRAX PHARMACEUTICALS
  Company Number: CA-BAUSCH-BL-2025-006143

PATIENT

DRUGS (2)
  1. CONTRAVE [Suspect]
     Active Substance: BUPROPION HYDROCHLORIDE\NALTREXONE HYDROCHLORIDE
     Indication: Product used for unknown indication
     Route: 048
  2. CONTRAVE [Suspect]
     Active Substance: BUPROPION HYDROCHLORIDE\NALTREXONE HYDROCHLORIDE
     Dosage: 90/8MG (1 DOSAGE FORMS,1 IN 24 HR)
     Route: 048
     Dates: start: 20250504

REACTIONS (4)
  - Surgery [Unknown]
  - Nausea [Unknown]
  - Intentional product use issue [Unknown]
  - Intentional underdose [Unknown]
